FAERS Safety Report 5721319-8 (Version None)
Quarter: 2008Q2

REPORT INFORMATION
  Report Type: 
  Country: None (occurrence: None)
  Receive Date: 20080429
  Receipt Date: 20080421
  Transmission Date: 20081010
  Serious: Yes (Disabling, Other)
  Sender: FDA-Public Use
  Company Number: IE-ABBOTT-07P-229-0377571-00

PATIENT
  Sex: Male

DRUGS (6)
  1. KLACID LA [Suspect]
     Indication: LOWER RESPIRATORY TRACT INFECTION
     Dosage: 500 MG TWICE A DAY FOR 7 DAYS
     Route: 048
     Dates: start: 20070719
  2. PRAVASTATIN SODIUM [Suspect]
     Indication: HYPERLIPIDAEMIA
     Route: 048
     Dates: start: 20060115
  3. TERBINAFINE HCL [Concomitant]
     Indication: DRUG USE FOR UNKNOWN INDICATION
  4. PERINDOPRIL ERBUMINE [Concomitant]
     Indication: DRUG USE FOR UNKNOWN INDICATION
     Dates: start: 20050815
  5. AVANDAMET [Concomitant]
     Indication: DRUG USE FOR UNKNOWN INDICATION
     Route: 048
     Dates: start: 20060101
  6. DIMICRAM MR [Concomitant]
     Indication: DRUG USE FOR UNKNOWN INDICATION
     Dates: start: 20060115

REACTIONS (3)
  - C-REACTIVE PROTEIN INCREASED [None]
  - SKIN ULCER [None]
  - VASCULITIC RASH [None]
